FAERS Safety Report 7532961-6 (Version None)
Quarter: 2011Q2

REPORT INFORMATION
  Report Type: 
  Country: None (occurrence: None)
  Receive Date: 20110608
  Receipt Date: 20110602
  Transmission Date: 20111010
  Serious: Yes (Other)
  Sender: FDA-Public Use
  Company Number: US-PFIZER INC-2011120654

PATIENT
  Sex: Female
  Weight: 88.5 kg

DRUGS (3)
  1. LYRICA [Suspect]
     Indication: FIBROMYALGIA
  2. LATUDA [Suspect]
     Dosage: UNK
     Route: 048
     Dates: start: 20110217
  3. ATIVAN [Concomitant]

REACTIONS (3)
  - HYPOTENSION [None]
  - DIZZINESS [None]
  - WEIGHT INCREASED [None]
